FAERS Safety Report 9964656 (Version 1)
Quarter: 2014Q1

REPORT INFORMATION
  Report Type: Spontaneous
  Country: US (occurrence: US)
  Receive Date: 20140305
  Receipt Date: 20140305
  Transmission Date: 20141002
  Serious: No
  Sender: FDA-Public Use
  Company Number: US-AMGEN-USASP2013089197

PATIENT
  Age: 59 Year
  Sex: Female

DRUGS (8)
  1. ENBREL [Suspect]
     Indication: PRODUCT USED FOR UNKNOWN INDICATION
     Dosage: 50 MG, QWK
     Route: 058
  2. VITAMIN D                          /00107901/ [Concomitant]
     Dosage: 1000 UNIT, UNK
  3. FISH OIL [Concomitant]
     Dosage: UNK
  4. VITAMIN B COMPLEX [Concomitant]
     Dosage: UNK
  5. MAGNESIUM [Concomitant]
     Dosage: 300 MG, UNK
  6. PREDNISONE [Concomitant]
     Dosage: 10 MG, UNK
  7. CYMBALTA [Concomitant]
     Dosage: 20 MG, UNK
  8. LYRICA [Concomitant]
     Dosage: 100 MG, UNK

REACTIONS (4)
  - Pain [Unknown]
  - Myalgia [Unknown]
  - Upper-airway cough syndrome [Unknown]
  - Laceration [Unknown]
